FAERS Safety Report 5792269-6 (Version None)
Quarter: 2008Q2

REPORT INFORMATION
  Report Type: 
  Country: None (occurrence: None)
  Receive Date: 20080626
  Receipt Date: 20080618
  Transmission Date: 20081010
  Serious: Yes (Hospitalization)
  Sender: FDA-Public Use
  Company Number: US-ELI_LILLY_AND_COMPANY-US200806004471

PATIENT
  Sex: Female
  Weight: 112.93 kg

DRUGS (15)
  1. BYETTA [Suspect]
     Indication: TYPE 2 DIABETES MELLITUS
     Dosage: 5 UG, 2/D
     Route: 058
     Dates: start: 20080413, end: 20080519
  2. BYETTA [Suspect]
     Dosage: 10 UG, 2/D
     Route: 058
     Dates: start: 20080520, end: 20080530
  3. BYETTA [Suspect]
     Dosage: 10 UG, 2/D
     Route: 058
     Dates: start: 20080601
  4. METFORMIN HCL [Concomitant]
     Indication: TYPE 2 DIABETES MELLITUS
     Dosage: 500 MG, 2/D
     Route: 048
     Dates: end: 20080530
  5. METFORMIN HCL [Concomitant]
     Dosage: 1000 MG, DAILY (1/D)
     Route: 048
     Dates: start: 20080531
  6. GLYBURIDE [Concomitant]
     Dosage: 5 MG, 2/D
     Route: 048
     Dates: end: 20080530
  7. PRAVACHOL [Concomitant]
     Dosage: 40 MG, DAILY (1/D)
     Route: 048
     Dates: end: 20080530
  8. PRAVACHOL [Concomitant]
     Dosage: 80 MG, DAILY (1/D)
     Route: 048
     Dates: start: 20080531
  9. DIOVAN /SCH/ [Concomitant]
     Dosage: 320 MG, UNK
  10. PROTONIX [Concomitant]
     Dosage: 40 MG, 2/D
     Route: 048
  11. IRON PREPARATIONS [Concomitant]
     Indication: SUPPLEMENTATION THERAPY
     Dosage: 4.5 MEQ, DAILY (1/D)
     Route: 048
  12. AMBIEN [Concomitant]
     Dosage: 10 MG, EACH EVENING
     Route: 048
  13. SINGULAIR [Concomitant]
     Indication: MULTIPLE ALLERGIES
     Dosage: 10 MG, DAILY (1/D)
     Route: 048
  14. ALLEGRA [Concomitant]
     Indication: MULTIPLE ALLERGIES
  15. XOPENEX [Concomitant]
     Indication: RHINITIS ALLERGIC
     Dosage: UNK, EACH EVENING

REACTIONS (11)
  - BLOOD GLUCOSE INCREASED [None]
  - CEREBROVASCULAR ACCIDENT [None]
  - DRUG INEFFECTIVE [None]
  - DYSARTHRIA [None]
  - FACIAL PALSY [None]
  - GLYCOSYLATED HAEMOGLOBIN INCREASED [None]
  - HEADACHE [None]
  - MALAISE [None]
  - SPEECH DISORDER [None]
  - STRESS [None]
  - WEIGHT DECREASED [None]
